FAERS Safety Report 25036929 (Version 4)
Quarter: 2025Q2

REPORT INFORMATION
  Report Type: Report from Study
  Country: US (occurrence: US)
  Receive Date: 20250304
  Receipt Date: 20250527
  Transmission Date: 20250717
  Serious: Yes (Hospitalization, Other)
  Sender: GILEAD
  Company Number: US-GILEAD-2025-0705750

PATIENT
  Age: 61 Year
  Sex: Female

DRUGS (44)
  1. AZTREONAM LYSINE [Suspect]
     Active Substance: AZTREONAM LYSINE
     Indication: Cystic fibrosis
     Dosage: 75MG: INHALE ONE VIAL (75 MG) VIA NEBULIZER THREE TIMES DAILY CYCLE 28 DAYS ON, 28 DAYS OFF
     Route: 055
     Dates: start: 20150121
  2. ACID REDUCER PLUS ANTACID [Concomitant]
     Active Substance: CALCIUM CARBONATE\FAMOTIDINE\MAGNESIUM HYDROXIDE
  3. ADVAIR HFA [Concomitant]
     Active Substance: FLUTICASONE PROPIONATE\SALMETEROL XINAFOATE
  4. ACET CODEINE [Concomitant]
  5. BENTYL [Concomitant]
     Active Substance: DICYCLOMINE HYDROCHLORIDE
  6. BENZONATATE [Concomitant]
     Active Substance: BENZONATATE
  7. CALCIUM [Concomitant]
     Active Substance: CALCIUM
  8. CARAFATE [Concomitant]
     Active Substance: SUCRALFATE
  9. OXYMETAZOLINE HYDROCHLORIDE [Concomitant]
     Active Substance: OXYMETAZOLINE HYDROCHLORIDE
  10. CRESEMBA [Concomitant]
     Active Substance: ISAVUCONAZONIUM SULFATE
  11. CYCLOBENZAPRINE [Concomitant]
     Active Substance: CYCLOBENZAPRINE
  12. ELIQUIS [Concomitant]
     Active Substance: APIXABAN
  13. FAMOTIDINE [Concomitant]
     Active Substance: FAMOTIDINE
  14. FLONASE ALLERGY RELIEF [Concomitant]
     Active Substance: FLUTICASONE PROPIONATE
  15. GUAIFENESIN [Concomitant]
     Active Substance: GUAIFENESIN
  16. LEVAQUIN [Concomitant]
     Active Substance: LEVOFLOXACIN
  17. LORATADINE [Concomitant]
     Active Substance: LORATADINE
  18. LEVALBUTEROL HYDROCHLORIDE [Concomitant]
     Active Substance: LEVALBUTEROL HYDROCHLORIDE
  19. MELATONIN [Concomitant]
     Active Substance: MELATONIN
  20. METAXALONE [Concomitant]
     Active Substance: METAXALONE
  21. MINOCYCLINE [Concomitant]
     Active Substance: MINOCYCLINE HYDROCHLORIDE
  22. MUCINEX [Concomitant]
     Active Substance: GUAIFENESIN
  23. OXYCODONE [Concomitant]
     Active Substance: OXYCODONE
  24. PANCREAZE [AMYLASE;LIPASE;PROTEASE NOS] [Concomitant]
  25. PANTOPRAZOLE [Concomitant]
     Active Substance: PANTOPRAZOLE
  26. PERCOCET [Concomitant]
     Active Substance: ACETAMINOPHEN\OXYCODONE HYDROCHLORIDE
  27. PREDNISONE [Concomitant]
     Active Substance: PREDNISONE
  28. PROCHLORPERAZINE [Concomitant]
     Active Substance: PROCHLORPERAZINE
  29. PROMETHAZINE [Concomitant]
     Active Substance: PROMETHAZINE HYDROCHLORIDE
  30. PULMOZYME [Concomitant]
     Active Substance: DORNASE ALFA
  31. TOBRAMYCIN [Concomitant]
     Active Substance: TOBRAMYCIN
  32. CREON [Concomitant]
     Active Substance: PANCRELIPASE AMYLASE\PANCRELIPASE LIPASE\PANCRELIPASE PROTEASE
  33. TRIKAFTA [Concomitant]
     Active Substance: ELEXACAFTOR\IVACAFTOR\TEZACAFTOR
  34. SEROQUEL [Concomitant]
     Active Substance: QUETIAPINE FUMARATE
  35. SERTRALINE [Concomitant]
     Active Substance: SERTRALINE HYDROCHLORIDE
  36. SODIUM CHLORIDE [Concomitant]
     Active Substance: SODIUM CHLORIDE
  37. TOPAMAX [Concomitant]
     Active Substance: TOPIRAMATE
  38. TRAMADOL [Concomitant]
     Active Substance: TRAMADOL
  39. URSODIOL [Concomitant]
     Active Substance: URSODIOL
  40. XIFAXAN [Concomitant]
     Active Substance: RIFAXIMIN
  41. ZOLOFT [Concomitant]
     Active Substance: SERTRALINE HYDROCHLORIDE
  42. SODIUM CHLORIDE [Concomitant]
     Active Substance: SODIUM CHLORIDE
  43. APAP/CODEINE PHOSPHATE [Concomitant]
  44. TRAZODONE [Concomitant]
     Active Substance: TRAZODONE HYDROCHLORIDE

REACTIONS (17)
  - Lung disorder [Recovered/Resolved]
  - Cystic fibrosis respiratory infection suppression [Recovered/Resolved]
  - Pneumonia [Unknown]
  - Sleep disorder [Recovered/Resolved]
  - Fatigue [Unknown]
  - Loss of personal independence in daily activities [Recovered/Resolved]
  - Dyspnoea [Recovered/Resolved]
  - Exercise tolerance decreased [Recovered/Resolved]
  - Nasal inflammation [Recovered/Resolved]
  - Cough [Recovered/Resolved]
  - Wheezing [Recovered/Resolved]
  - Social problem [Recovered/Resolved]
  - Nasal congestion [Recovered/Resolved]
  - Productive cough [Recovered/Resolved]
  - Muscle spasms [Unknown]
  - Dyspepsia [Unknown]
  - Pain [Unknown]

NARRATIVE: CASE EVENT DATE: 20250420
